FAERS Safety Report 6869153-X (Version None)
Quarter: 2010Q3

REPORT INFORMATION
  Report Type: 
  Country: None (occurrence: None)
  Receive Date: 20100722
  Receipt Date: 20080716
  Transmission Date: 20110219
  Serious: Yes (Other)
  Sender: FDA-Public Use
  Company Number: US-PFIZER INC-2008058306

PATIENT
  Sex: Male
  Weight: 111 kg

DRUGS (2)
  1. CHANTIX [Suspect]
     Indication: SMOKING CESSATION THERAPY
     Route: 048
     Dates: start: 20080201, end: 20080501
  2. KLONOPIN [Concomitant]
     Route: 048

REACTIONS (4)
  - FATIGUE [None]
  - HALLUCINATION [None]
  - RESTLESSNESS [None]
  - SOMNOLENCE [None]
